FAERS Safety Report 18410694 (Version 1)
Quarter: 2020Q4

REPORT INFORMATION
  Report Type: Spontaneous
  Country: CH (occurrence: CH)
  Receive Date: 20201021
  Receipt Date: 20201021
  Transmission Date: 20210114
  Serious: Yes (Other)
  Sender: FDA-Public Use
  Company Number: CH-ELI_LILLY_AND_COMPANY-CH202010006376

PATIENT
  Sex: Male

DRUGS (8)
  1. ALIMTA [Suspect]
     Active Substance: PEMETREXED DISODIUM
     Indication: LUNG ADENOCARCINOMA
     Dosage: UNK, UNKNOWN
     Route: 065
     Dates: start: 201905, end: 201907
  2. PEMBROLIZUMAB. [Suspect]
     Active Substance: PEMBROLIZUMAB
     Indication: LUNG ADENOCARCINOMA
     Dosage: UNK, UNKNOWN
     Route: 065
     Dates: start: 201905, end: 201907
  3. PEMBROLIZUMAB. [Suspect]
     Active Substance: PEMBROLIZUMAB
     Dosage: UNK, UNKNOWN (MAINTENENCE)
     Route: 065
     Dates: start: 201907, end: 202007
  4. CARBOPLATIN. [Suspect]
     Active Substance: CARBOPLATIN
     Indication: LUNG ADENOCARCINOMA
     Dosage: UNK, UNKNOWN
     Route: 065
     Dates: start: 201905, end: 201907
  5. ATORVASTATIN [Concomitant]
     Active Substance: ATORVASTATIN
     Indication: PRODUCT USED FOR UNKNOWN INDICATION
     Dosage: UNK, UNKNOWN
     Route: 065
  6. ALIMTA [Suspect]
     Active Substance: PEMETREXED DISODIUM
     Dosage: UNK, UNKNOWN (MAINTENENCE)
     Route: 065
     Dates: start: 201907, end: 202007
  7. XGEVA [Suspect]
     Active Substance: DENOSUMAB
     Indication: PRODUCT USED FOR UNKNOWN INDICATION
     Dosage: UNK, UNKNOWN
     Route: 065
     Dates: start: 201906, end: 202005
  8. ACETYLSALICYLIC ACID [Concomitant]
     Active Substance: ASPIRIN
     Indication: PRODUCT USED FOR UNKNOWN INDICATION
     Dosage: UNK, UNKNOWN
     Route: 065
     Dates: start: 20200220

REACTIONS (20)
  - Vocal cord paresis [Unknown]
  - Immune-mediated hepatitis [Unknown]
  - Hyperlipidaemia [Not Recovered/Not Resolved]
  - Osteonecrosis of jaw [Recovered/Resolved]
  - Chronic obstructive pulmonary disease [Unknown]
  - Mucosal inflammation [Unknown]
  - Capillary disorder [Unknown]
  - Coronary artery disease [Unknown]
  - Rhinitis [Unknown]
  - Malignant neoplasm progression [Unknown]
  - Rash [Unknown]
  - Wound abscess [Unknown]
  - Aortic thrombosis [Unknown]
  - Portal vein thrombosis [Unknown]
  - Pruritus [Not Recovered/Not Resolved]
  - Chronic kidney disease [Unknown]
  - Off label use [Recovered/Resolved]
  - Extrasystoles [Unknown]
  - Hypothyroidism [Unknown]
  - Aortic aneurysm [Unknown]

NARRATIVE: CASE EVENT DATE: 201905
